FAERS Safety Report 4468978-8 (Version None)
Quarter: 2004Q4

REPORT INFORMATION
  Report Type: 
  Country: None (occurrence: None)
  Receive Date: 20041004
  Receipt Date: 20041004
  Transmission Date: 20050328
  Serious: Yes (Other)
  Sender: FDA-Public Use
  Company Number: None

PATIENT
  Age: 70 Year
  Sex: Male
  Weight: 84.4 kg

DRUGS (5)
  1. ATORVASTATIN CALCIUM [Suspect]
  2. LANSOPRAZOLE [Concomitant]
  3. FOSINOPRIL NA [Concomitant]
  4. METOPROLOL TARTRATE [Concomitant]
  5. DILTIAZEM (INWOOD) [Concomitant]

REACTIONS (1)
  - MYALGIA [None]
